FAERS Safety Report 17447550 (Version 1)
Quarter: 2020Q1

REPORT INFORMATION
  Report Type: Spontaneous
  Country: CA (occurrence: CA)
  Receive Date: 20200221
  Receipt Date: 20200221
  Transmission Date: 20200409
  Serious: No
  Sender: FDA-Public Use
  Company Number: CA-JAZZ-2019-CA-018104

PATIENT
  Sex: Male

DRUGS (4)
  1. XYREM [Suspect]
     Active Substance: SODIUM OXYBATE
     Dosage: 9 G NIGHTLY
     Route: 048
     Dates: start: 201906, end: 2019
  2. XYREM [Suspect]
     Active Substance: SODIUM OXYBATE
     Dosage: 8 G NIGHTLY
     Route: 048
     Dates: start: 201907, end: 20191212
  3. XYREM [Suspect]
     Active Substance: SODIUM OXYBATE
     Dosage: 8.5 G NIGHTLY
     Route: 048
     Dates: start: 2019, end: 2019
  4. XYREM [Suspect]
     Active Substance: SODIUM OXYBATE
     Indication: PRODUCT USED FOR UNKNOWN INDICATION
     Dosage: UNKNOWN DOSE
     Route: 048
     Dates: start: 201904, end: 2019

REACTIONS (1)
  - Poor quality sleep [Unknown]
